FAERS Safety Report 4935164-4 (Version None)
Quarter: 2006Q1

REPORT INFORMATION
  Report Type: 
  Country: None (occurrence: None)
  Receive Date: 20060306
  Receipt Date: 20060306
  Transmission Date: 20060701
  Serious: No
  Sender: FDA-Public Use
  Company Number: None

PATIENT
  Sex: Male
  Weight: 79.4 kg

DRUGS (1)
  1. TAXOL [Suspect]
     Dates: start: 20060303

REACTIONS (1)
  - MEDICAL DEVICE COMPLICATION [None]
